FAERS Safety Report 20687852 (Version 1)
Quarter: 2022Q2

REPORT INFORMATION
  Report Type: Spontaneous
  Country: BG (occurrence: BG)
  Receive Date: 20220408
  Receipt Date: 20220408
  Transmission Date: 20220720
  Serious: Yes (Other)
  Sender: FDA-Public Use
  Company Number: BG-SA-SAC20211102000699

PATIENT
  Sex: Female

DRUGS (1)
  1. ENOXAPARIN SODIUM [Suspect]
     Active Substance: ENOXAPARIN SODIUM
     Dosage: CLEXANE 4 000 IU (40 MG)/0,4 ML

REACTIONS (3)
  - Abortion missed [Unknown]
  - Foetal cardiac arrest [Unknown]
  - Maternal exposure during pregnancy [Unknown]
